FAERS Safety Report 8190962-1 (Version None)
Quarter: 2012Q1

REPORT INFORMATION
  Report Type: 
  Country: None (occurrence: None)
  Receive Date: 20120307
  Receipt Date: 20120302
  Transmission Date: 20120608
  Serious: Yes (Hospitalization)
  Sender: FDA-Public Use
  Company Number: US-ACTELION-A-NJ2011-53040

PATIENT

DRUGS (5)
  1. VENTAVIS [Suspect]
     Indication: PULMONARY ARTERIAL HYPERTENSION
     Dosage: 6 X PER DAY
     Route: 055
     Dates: start: 20110811, end: 20110101
  2. ASMANEX TWISTHALER [Concomitant]
  3. TRACLEER [Suspect]
     Indication: PULMONARY ARTERIAL HYPERTENSION
     Dosage: UNK
     Route: 048
     Dates: start: 20110412
  4. REVATIO [Concomitant]
  5. OXYGEN [Concomitant]

REACTIONS (21)
  - DYSKINESIA [None]
  - FEELING HOT [None]
  - OEDEMA PERIPHERAL [None]
  - DIZZINESS [None]
  - TACHYCARDIA [None]
  - PRURITUS [None]
  - FEELING JITTERY [None]
  - SKIN DISCOLOURATION [None]
  - BLOOD PRESSURE INCREASED [None]
  - FLUSHING [None]
  - NERVOUSNESS [None]
  - DYSPNOEA [None]
  - PALPITATIONS [None]
  - MUSCULAR WEAKNESS [None]
  - SALIVARY HYPERSECRETION [None]
  - NAUSEA [None]
  - FEELING ABNORMAL [None]
  - CONFUSIONAL STATE [None]
  - NASAL CONGESTION [None]
  - HYPOAESTHESIA [None]
  - DRY SKIN [None]
